FAERS Safety Report 8324777-8 (Version None)
Quarter: 2012Q2

REPORT INFORMATION
  Report Type: 
  Country: None (occurrence: None)
  Receive Date: 20120501
  Receipt Date: 20120427
  Transmission Date: 20120825
  Serious: Yes (Death, Other)
  Sender: FDA-Public Use
  Company Number: PHHY2012PE034077

PATIENT
  Sex: Male

DRUGS (3)
  1. STALEVO 100 [Suspect]
     Indication: PARKINSON'S DISEASE
     Dosage: 200MG/50 MG/12.5 MG PER DAY
     Dates: start: 20090714
  2. EXELON [Suspect]
     Dosage: 1.5 MG, UNK
     Dates: start: 20060101
  3. STALEVO 100 [Suspect]
     Dosage: 50 MG/12.5 MG/200 MG PER DAY

REACTIONS (2)
  - DEATH [None]
  - PNEUMONIA [None]
